FAERS Safety Report 8237988 (Version 2)
Quarter: 2013Q4

REPORT INFORMATION
  Report Type: Spontaneous
  Country: US (occurrence: US)
  Receive Date: 20111109
  Receipt Date: 20131209
  Transmission Date: 20140711
  Serious: Yes (Hospitalization)
  Sender: FDA-Public Use
  Company Number: US-GLAXOSMITHKLINE-A0915614A

PATIENT
  Age: 49 Year
  Sex: Female
  Weight: 86.8 kg

DRUGS (1)
  1. AVANDIA [Suspect]
     Indication: DIABETES MELLITUS
     Route: 048
     Dates: start: 200203, end: 2007

REACTIONS (5)
  - Acute coronary syndrome [Recovering/Resolving]
  - Myocardial infarction [Unknown]
  - Coronary artery disease [Unknown]
  - Stent placement [Unknown]
  - Coronary angioplasty [Unknown]
